FAERS Safety Report 7910782-X (Version None)
Quarter: 2011Q4

REPORT INFORMATION
  Report Type: 
  Country: None (occurrence: None)
  Receive Date: 20111112
  Receipt Date: 20111104
  Transmission Date: 20120403
  Serious: Yes (Life-Threatening)
  Sender: FDA-Public Use
  Company Number: FR-ABBOTT-11P-056-0871447-00

PATIENT
  Sex: Female

DRUGS (17)
  1. PANTOPRAZOLE SODIUM [Suspect]
     Indication: PRODUCT USED FOR UNKNOWN INDICATION
     Route: 048
  2. BRICANYL [Suspect]
     Indication: ASTHMA
     Dosage: 30 MG
     Route: 055
     Dates: start: 20080101
  3. ATROVENT [Suspect]
     Indication: ASTHMA
     Route: 055
     Dates: start: 20080101
  4. ACETAMINOPHEN [Suspect]
     Indication: PRODUCT USED FOR UNKNOWN INDICATION
     Route: 048
  5. XOLAIR [Suspect]
     Dosage: DOSAGE INCREASED
     Route: 058
     Dates: start: 20100401, end: 20100805
  6. CACIT VITAMINE D3 [Suspect]
     Indication: PRODUCT USED FOR UNKNOWN INDICATION
     Route: 048
  7. XOLAIR [Suspect]
     Dosage: DOSAGE DECREASED
     Route: 058
     Dates: start: 20090801, end: 20100401
  8. SYMBICORT [Suspect]
     Indication: ASTHMA
     Dosage: 400/12 MCG
     Route: 055
     Dates: start: 20100101
  9. DEDROGYL [Suspect]
     Indication: PRODUCT USED FOR UNKNOWN INDICATION
     Dosage: 3 DOSAGE FORMS
     Route: 048
  10. XOLAIR [Suspect]
     Indication: ASTHMA
     Route: 058
     Dates: start: 20080710, end: 20110805
  11. ALDACTONE [Suspect]
     Indication: PRODUCT USED FOR UNKNOWN INDICATION
     Route: 048
  12. SINGULAIR [Suspect]
     Indication: ASTHMA
     Route: 048
  13. PREDNISONE [Suspect]
     Indication: ASTHMA
     Route: 048
     Dates: start: 20060101
  14. UTEPLEX [Suspect]
     Indication: PRODUCT USED FOR UNKNOWN INDICATION
     Route: 048
  15. DESLORATADINE [Suspect]
     Indication: ASTHMA
     Dosage: 1 DOSAGE FORM
     Route: 055
  16. FENOFIBRATE [Suspect]
     Indication: PRODUCT USED FOR UNKNOWN INDICATION
  17. PROTELOS [Suspect]
     Indication: OSTEOPOROSIS
     Route: 048
     Dates: start: 20100101

REACTIONS (3)
  - CHEST PAIN [None]
  - NEURALGIA [None]
  - SQUAMOUS CELL CARCINOMA [None]
